FAERS Safety Report 23133152 (Version 1)
Quarter: 2023Q4

REPORT INFORMATION
  Report Type: Spontaneous
  Country: JP (occurrence: JP)
  Receive Date: 20231101
  Receipt Date: 20231101
  Transmission Date: 20240110
  Serious: Yes (Hospitalization, Disabling)
  Sender: FDA-Public Use
  Company Number: JP-DSJP-DSJ-2023-136593

PATIENT
  Age: 77 Year
  Sex: Male

DRUGS (2)
  1. DENOSUMAB [Suspect]
     Active Substance: DENOSUMAB
     Indication: Metastases to bone
     Dosage: UNK, 75 TIMES IN TOTAL
     Route: 065
     Dates: start: 20160519, end: 20230818
  2. OPDIVO [Suspect]
     Active Substance: NIVOLUMAB
     Indication: Metastases to lung
     Dosage: UNK
     Route: 041
     Dates: start: 20170523

REACTIONS (8)
  - Dry skin [Not Recovered/Not Resolved]
  - Hypocalcaemia [Unknown]
  - Osteonecrosis of jaw [Recovering/Resolving]
  - Peripheral coldness [Unknown]
  - Limb deformity [Not Recovered/Not Resolved]
  - Arthralgia [Unknown]
  - Arthralgia [Unknown]
  - Pruritus [Not Recovered/Not Resolved]

NARRATIVE: CASE EVENT DATE: 20230101
